FAERS Safety Report 16629303 (Version 2)
Quarter: 2019Q3

REPORT INFORMATION
  Report Type: Spontaneous
  Country: US (occurrence: US)
  Receive Date: 20190725
  Receipt Date: 20190926
  Transmission Date: 20191004
  Serious: No
  Sender: FDA-Public Use
  Company Number: US-BIOGEN-2018BI00504527

PATIENT
  Sex: Female

DRUGS (7)
  1. VITAMIN B12 [Concomitant]
     Active Substance: CYANOCOBALAMIN
     Route: 065
  2. VITAMIN D3 [Concomitant]
     Active Substance: CHOLECALCIFEROL
     Route: 065
  3. BACLOFEN. [Concomitant]
     Active Substance: BACLOFEN
     Route: 065
  4. TRIPLE ANTIBIOTIC PLUS [Concomitant]
     Active Substance: BACITRACIN ZINC\NEOMYCIN\POLYMYXIN B SULFATE\PRAMOXINE HYDROCHLORIDE
     Route: 065
  5. LEXAPRO [Concomitant]
     Active Substance: ESCITALOPRAM OXALATE
     Route: 065
  6. PEPCID [Concomitant]
     Active Substance: FAMOTIDINE
     Route: 065
  7. TECFIDERA [Suspect]
     Active Substance: DIMETHYL FUMARATE
     Indication: MULTIPLE SCLEROSIS
     Dosage: TAKE 1 CAPSULE BY?MOUTH 2 TIMES A DAY.
     Route: 050

REACTIONS (3)
  - Abdominal pain [Not Recovered/Not Resolved]
  - Product dose omission [Unknown]
  - Abdominal pain upper [Not Recovered/Not Resolved]
